FAERS Safety Report 25083837 (Version 2)
Quarter: 2025Q2

REPORT INFORMATION
  Report Type: Spontaneous
  Country: US (occurrence: US)
  Receive Date: 20250317
  Receipt Date: 20250401
  Transmission Date: 20250717
  Serious: Yes (Hospitalization)
  Sender: AUROBINDO
  Company Number: US-AUROBINDO-AUR-APL-2025-014442

PATIENT
  Age: 23 Month
  Sex: Female

DRUGS (5)
  1. MONTELUKAST [Suspect]
     Active Substance: MONTELUKAST
     Indication: Asthma
     Route: 065
  2. CETIRIZINE [Suspect]
     Active Substance: CETIRIZINE HYDROCHLORIDE
     Indication: Asthma
     Route: 065
  3. FLUTICASONE PROPIONATE [Suspect]
     Active Substance: FLUTICASONE PROPIONATE
     Indication: Asthma
     Dosage: 44 MICROGRAM, TWO TIMES A DAY ( (TWO PUFFS TWICE DAILY))
     Route: 065
  4. BUDESONIDE [Concomitant]
     Active Substance: BUDESONIDE
     Indication: Product used for unknown indication
     Dosage: 0.5 MILLIGRAM, TWO TIMES A DAY
     Route: 065
  5. DUPILUMAB [Concomitant]
     Active Substance: DUPILUMAB
     Indication: Product used for unknown indication
     Route: 058

REACTIONS (1)
  - Drug ineffective [Unknown]
